FAERS Safety Report 14895296 (Version 1)
Quarter: 2018Q2

REPORT INFORMATION
  Report Type: Spontaneous
  Country: FR (occurrence: FR)
  Receive Date: 20180515
  Receipt Date: 20180515
  Transmission Date: 20180711
  Serious: Yes (Other)
  Sender: FDA-Public Use
  Company Number: FR-MERCK KGAA-2047741

PATIENT
  Age: 38 Year
  Sex: Female

DRUGS (1)
  1. NOVOTHYROX [Suspect]
     Active Substance: LEVOTHYROXINE SODIUM
     Indication: PRODUCT USED FOR UNKNOWN INDICATION

REACTIONS (11)
  - Mood altered [None]
  - Libido decreased [None]
  - Major depression [None]
  - Fatigue [None]
  - Weight increased [None]
  - Gamma-glutamyltransferase increased [None]
  - Alopecia [None]
  - Insomnia [None]
  - Aggression [None]
  - Constipation [None]
  - Headache [None]

NARRATIVE: CASE EVENT DATE: 201706
